FAERS Safety Report 6692029-8 (Version None)
Quarter: 2010Q2

REPORT INFORMATION
  Report Type: 
  Country: None (occurrence: None)
  Receive Date: 20100415
  Receipt Date: 20090701
  Transmission Date: 20101027
  Serious: No
  Sender: FDA-Public Use
  Company Number: 2009-00405

PATIENT
  Age: 59 Year
  Sex: Female
  Weight: 112.9457 kg

DRUGS (13)
  1. ZICAM COLD REMEDY GEL SWABS [Suspect]
     Dosage: QD - 14 DAYS
     Dates: start: 20090317, end: 20090331
  2. CYMBALTA [Concomitant]
  3. SINGULAIR [Concomitant]
  4. ADVAIR MDI [Concomitant]
  5. ALBUTEROL [Concomitant]
  6. SIMVASTATIN [Concomitant]
  7. LISINOPRIL [Concomitant]
  8. MULTI-VITAMIN [Concomitant]
  9. B1 [Concomitant]
  10. PYRIDOXINE HCL [Concomitant]
  11. VITAMIN B-12 [Concomitant]
  12. LANTUS [Concomitant]
  13. JANUVIA [Concomitant]

REACTIONS (2)
  - ANOSMIA [None]
  - NASAL ULCER [None]
